FAERS Safety Report 10313157 (Version 2)
Quarter: 2014Q3

REPORT INFORMATION
  Report Type: Spontaneous
  Country: CN (occurrence: CN)
  Receive Date: 20140718
  Receipt Date: 20140718
  Transmission Date: 20150326
  Serious: Yes (Other)
  Sender: FDA-Public Use
  Company Number: PHHY2014CN010656

PATIENT
  Age: 2 Year
  Sex: Female

DRUGS (4)
  1. TRILEPTAL [Suspect]
     Active Substance: OXCARBAZEPINE
     Indication: EPILEPSY
     Dosage: 2.5 ML, BID
     Route: 048
     Dates: start: 20140107, end: 20140112
  2. LYSINE [Concomitant]
     Active Substance: LYSINE
     Dosage: UNK UKN, UNK
  3. TRILEPTAL [Suspect]
     Active Substance: OXCARBAZEPINE
     Dosage: UNK UKN, UNK
  4. VITAMIN B12 [Concomitant]
     Active Substance: CYANOCOBALAMIN
     Dosage: UNK UKN, UNK

REACTIONS (8)
  - Hypotonia [Unknown]
  - Unevaluable event [Recovering/Resolving]
  - Inappropriate affect [Recovering/Resolving]
  - Pyrexia [Unknown]
  - Mental disorder [Unknown]
  - Salivary hypersecretion [Unknown]
  - Constipation [Recovered/Resolved]
  - Convulsion [Unknown]

NARRATIVE: CASE EVENT DATE: 20140108
